FAERS Safety Report 4679134-2 (Version None)
Quarter: 2005Q2

REPORT INFORMATION
  Report Type: 
  Country: None (occurrence: None)
  Receive Date: 20050527
  Receipt Date: 20050309
  Transmission Date: 20051028
  Serious: No
  Sender: FDA-Public Use
  Company Number: PHEH2004US10881

PATIENT
  Age: 56 Year
  Sex: Female

DRUGS (6)
  1. ZELNORM [Suspect]
     Indication: IRRITABLE BOWEL SYNDROME
     Dosage: 6 MG, BID, ORAL
     Route: 048
     Dates: start: 20040701, end: 20050101
  2. PROZAC [Concomitant]
  3. XANAX [Concomitant]
  4. PREMARIN [Concomitant]
  5. METAMUCIL-2 [Concomitant]
  6. OMEPRAZOLE [Concomitant]

REACTIONS (6)
  - ABDOMINAL DISTENSION [None]
  - ABDOMINAL PAIN [None]
  - CONDITION AGGRAVATED [None]
  - DIARRHOEA [None]
  - HEADACHE [None]
  - MIGRAINE [None]
